FAERS Safety Report 14463265 (Version 1)
Quarter: 2018Q1

REPORT INFORMATION
  Report Type: Other
  Country: US (occurrence: US)
  Receive Date: 20180130
  Receipt Date: 20180130
  Transmission Date: 20180509
  Serious: No
  Sender: FDA-Public Use
  Company Number: US-ACORDA-ACO_146075_2018

PATIENT
  Age: 57 Year
  Sex: Female

DRUGS (8)
  1. AUBAGIO [Concomitant]
     Active Substance: TERIFLUNOMIDE
     Indication: MULTIPLE SCLEROSIS
     Dosage: UNK
     Route: 065
     Dates: start: 201608, end: 201712
  2. OXYBUTYNIN CHLORIDE. [Concomitant]
     Active Substance: OXYBUTYNIN CHLORIDE
     Indication: PRODUCT USED FOR UNKNOWN INDICATION
     Dosage: UNK
     Route: 065
  3. CYANOCOBALAMIN. [Concomitant]
     Active Substance: CYANOCOBALAMIN
     Indication: PRODUCT USED FOR UNKNOWN INDICATION
     Dosage: UNK
     Route: 065
  4. TECFIDERA [Suspect]
     Active Substance: DIMETHYL FUMARATE
     Indication: MULTIPLE SCLEROSIS
     Dosage: UNK
     Route: 065
     Dates: start: 2016
  5. LISINOPRIL. [Concomitant]
     Active Substance: LISINOPRIL
     Indication: PRODUCT USED FOR UNKNOWN INDICATION
     Dosage: UNK
     Route: 065
  6. FOLIC ACID. [Concomitant]
     Active Substance: FOLIC ACID
     Indication: PRODUCT USED FOR UNKNOWN INDICATION
     Dosage: UNK
     Route: 065
  7. AMPYRA [Suspect]
     Active Substance: DALFAMPRIDINE
     Indication: GAIT DISTURBANCE
     Dosage: UNK
     Route: 065
  8. AMPYRA [Suspect]
     Active Substance: DALFAMPRIDINE
     Dosage: UNK
     Route: 065

REACTIONS (25)
  - Coordination abnormal [Unknown]
  - Therapy cessation [Recovered/Resolved]
  - Carpal tunnel syndrome [Unknown]
  - Lymphocyte count decreased [Unknown]
  - Lymphocyte count decreased [Recovered/Resolved]
  - Muscular weakness [Unknown]
  - Central nervous system lesion [Unknown]
  - Condition aggravated [Unknown]
  - Depression [Unknown]
  - Paraesthesia [Unknown]
  - Hypersomnia [Unknown]
  - Vitamin B12 deficiency [Unknown]
  - Drug ineffective [Unknown]
  - Arthritis [Unknown]
  - Decreased appetite [Unknown]
  - Vitamin D deficiency [Unknown]
  - Intervertebral disc protrusion [Unknown]
  - Blood glucose increased [Unknown]
  - Neurogenic bladder [Unknown]
  - Neutrophil count increased [Unknown]
  - Gait disturbance [Unknown]
  - Initial insomnia [Unknown]
  - Insomnia [Unknown]
  - Fatigue [Unknown]
  - Asthenia [Unknown]

NARRATIVE: CASE EVENT DATE: 201602
